FAERS Safety Report 23828602 (Version 1)
Quarter: 2024Q2

REPORT INFORMATION
  Report Type: Report from Study
  Country: CA (occurrence: CA)
  Receive Date: 20240508
  Receipt Date: 20240508
  Transmission Date: 20240715
  Serious: Yes (Hospitalization)
  Sender: FDA-Public Use
  Company Number: CA-SA-SAC20240322001382

PATIENT
  Age: 57 Year
  Sex: Female
  Weight: 85 kg

DRUGS (11)
  1. RIFAPENTINE [Suspect]
     Active Substance: RIFAPENTINE
     Indication: Latent tuberculosis
     Dosage: UNK
     Route: 065
     Dates: start: 20240123, end: 20240209
  2. RIFAPENTINE [Suspect]
     Active Substance: RIFAPENTINE
     Dosage: UNK
     Route: 065
     Dates: start: 20240213, end: 20240227
  3. RIFAPENTINE [Suspect]
     Active Substance: RIFAPENTINE
     Dosage: UNK
     Route: 065
     Dates: start: 20240305, end: 20240312
  4. RIFAPENTINE [Suspect]
     Active Substance: RIFAPENTINE
     Dosage: UNK
     Route: 065
     Dates: start: 20240317, end: 20240326
  5. AMLODIPINE [Concomitant]
     Active Substance: AMLODIPINE BESYLATE
     Dosage: 5 MG, QD
     Dates: end: 20240206
  6. AMLODIPINE [Concomitant]
     Active Substance: AMLODIPINE BESYLATE
     Dosage: 7.5 MG, QD
     Dates: start: 20240206
  7. ALLOPURINOL [Concomitant]
     Active Substance: ALLOPURINOL
  8. SEMAGLUTIDE [Concomitant]
     Active Substance: SEMAGLUTIDE
  9. OZEMPIC [Concomitant]
     Active Substance: SEMAGLUTIDE
  10. ROSUVASTATIN [Concomitant]
     Active Substance: ROSUVASTATIN
  11. COLCHICINE [Concomitant]
     Active Substance: COLCHICINE

REACTIONS (2)
  - Hypertension [Recovered/Resolved]
  - Hypersensitivity [Unknown]

NARRATIVE: CASE EVENT DATE: 20240101
